FAERS Safety Report 8847393 (Version 11)
Quarter: 2013Q3

REPORT INFORMATION
  Report Type: Report from Study
  Country: US (occurrence: US)
  Receive Date: 20121018
  Receipt Date: 20130703
  Transmission Date: 20140515
  Serious: Yes (Hospitalization)
  Sender: FDA-Public Use
  Company Number: US-ACTELION-A-NJ2012-72936

PATIENT
  Age: 50 Year
  Sex: Male

DRUGS (3)
  1. VENTAVIS [Suspect]
     Indication: PULMONARY ARTERIAL HYPERTENSION
     Dosage: UNK
     Route: 055
  2. LETAIRIS [Suspect]
     Dosage: 5 MG, OD
     Route: 048
     Dates: start: 20110406
  3. ADCIRCA [Suspect]

REACTIONS (13)
  - Anaemia [Unknown]
  - Pyrexia [Unknown]
  - Transfusion [Unknown]
  - Gastrointestinal bacterial infection [Unknown]
  - Blood potassium decreased [Unknown]
  - Hepatic cancer [Unknown]
  - Hepatic embolisation [Unknown]
  - Infection [Unknown]
  - Fluid retention [Unknown]
  - Oedema [Unknown]
  - Swelling [Not Recovered/Not Resolved]
  - Muscle spasms [Not Recovered/Not Resolved]
  - Treatment noncompliance [Unknown]
